FAERS Safety Report 24583505 (Version 1)
Quarter: 2024Q4

REPORT INFORMATION
  Report Type: Spontaneous
  Country: FR (occurrence: FR)
  Receive Date: 20241106
  Receipt Date: 20241106
  Transmission Date: 20250115
  Serious: Yes (Death, Other)
  Sender: ALKEM
  Company Number: FR-ALKEM LABORATORIES LIMITED-FR-ALKEM-2024-18127

PATIENT
  Age: 86 Year
  Sex: Female

DRUGS (4)
  1. TICAGRELOR [Suspect]
     Active Substance: TICAGRELOR
     Indication: Antiplatelet therapy
     Dosage: 180 MILLIGRAM (180 MG LOADING DOSE WAS ADMINISTERED THE EVENING BEFORE INTERVENTION AND A SECOND 180
     Route: 065
  2. TICAGRELOR [Suspect]
     Active Substance: TICAGRELOR
     Dosage: UNK (EVENING AFTER THE INTERVENTION AND 2 DAILY DOSES OF 90 MILLIGRAM)
     Route: 065
  3. ASPIRIN [Suspect]
     Active Substance: ASPIRIN
     Indication: Antiplatelet therapy
     Dosage: 250 MILLIGRAM, QD
     Route: 042
  4. ASPIRIN [Suspect]
     Active Substance: ASPIRIN
     Dosage: 160 MILLIGRAM, QD
     Route: 065

REACTIONS (1)
  - Subdural haematoma [Fatal]
